FAERS Safety Report 10275839 (Version 3)
Quarter: 2014Q3

REPORT INFORMATION
  Report Type: Report from Study
  Country: US (occurrence: US)
  Receive Date: 20140703
  Receipt Date: 20140725
  Transmission Date: 20150326
  Serious: Yes (Hospitalization)
  Sender: FDA-Public Use
  Company Number: US-BAYER-2014-045694

PATIENT
  Age: 76 Year
  Sex: Female

DRUGS (1)
  1. STIVARGA [Suspect]
     Active Substance: REGORAFENIB
     Indication: COLON CANCER
     Dosage: 3 X 40 MG DAILY
     Route: 048
     Dates: start: 20130715

REACTIONS (4)
  - Blood potassium decreased [None]
  - Blood magnesium decreased [None]
  - Cystitis [None]
  - Muscle spasms [None]
